FAERS Safety Report 9533931 (Version 2)
Quarter: 2013Q3

REPORT INFORMATION
  Report Type: Spontaneous
  Country: CA (occurrence: CA)
  Receive Date: 20130918
  Receipt Date: 20130918
  Transmission Date: 20140515
  Serious: Yes (Disabling)
  Sender: FDA-Public Use
  Company Number: CA-SHIRE-ALL1-2013-04406

PATIENT
  Age: 34 Year
  Sex: Female
  Weight: 68.8 kg

DRUGS (3)
  1. VYVANSE [Suspect]
     Indication: ATTENTION DEFICIT/HYPERACTIVITY DISORDER
     Dosage: 30 MG, 1X/DAY:QD
     Route: 048
     Dates: start: 201211, end: 201304
  2. PRISTIQ [Suspect]
     Indication: ANXIETY
     Dosage: 50 MG, 1X/DAY:QD
     Route: 065
     Dates: start: 201303, end: 201304
  3. PRISTIQ [Suspect]
     Indication: DEPRESSION

REACTIONS (2)
  - Adrenergic syndrome [Recovered/Resolved]
  - Drug interaction [Recovered/Resolved]
